FAERS Safety Report 5837041-3 (Version None)
Quarter: 2008Q3

REPORT INFORMATION
  Report Type: 
  Country: None (occurrence: None)
  Receive Date: 20080807
  Receipt Date: 20080609
  Transmission Date: 20090109
  Serious: No
  Sender: FDA-Public Use
  Company Number: US-BRISTOL-MYERS SQUIBB COMPANY-14220727

PATIENT
  Age: 64 Year
  Sex: Female

DRUGS (2)
  1. GLUCOVANCE [Suspect]
  2. AVANDIA [Suspect]

REACTIONS (1)
  - LIP HAEMORRHAGE [None]
